FAERS Safety Report 15752563 (Version 2)
Quarter: 2019Q3

REPORT INFORMATION
  Report Type: Report from Study
  Country: MY (occurrence: MY)
  Receive Date: 20181221
  Receipt Date: 20190723
  Transmission Date: 20191004
  Serious: Yes (Death, Other)
  Sender: FDA-Public Use
  Company Number: MY-SEATTLE GENETICS-2017SGN03224

PATIENT
  Age: 25 Year
  Sex: Female

DRUGS (1)
  1. BRENTUXIMAB VEDOTIN-MPI [Suspect]
     Active Substance: BRENTUXIMAB VEDOTIN
     Indication: HODGKIN^S DISEASE REFRACTORY
     Dosage: 150 MG, UNK
     Route: 042
     Dates: start: 20170314, end: 20180622

REACTIONS (3)
  - Transplantation complication [Fatal]
  - Hodgkin^s disease recurrent [Unknown]
  - Pyrexia [Unknown]

NARRATIVE: CASE EVENT DATE: 20171212
